FAERS Safety Report 21000336 (Version 2)
Quarter: 2022Q4

REPORT INFORMATION
  Report Type: Spontaneous
  Country: US (occurrence: US)
  Receive Date: 20220623
  Receipt Date: 20221003
  Transmission Date: 20230113
  Serious: Yes (Other)
  Sender: FDA-Public Use
  Company Number: US-BRISTOL-MYERS SQUIBB COMPANY-2022-058671

PATIENT
  Age: 52 Year
  Sex: Male
  Weight: 81.646 kg

DRUGS (6)
  1. REVLIMID [Suspect]
     Active Substance: LENALIDOMIDE
     Indication: Plasma cell myeloma
     Dosage: DOSE : 25 MG;     FREQ : 14 DAYS ON 7 DAYS OFF OR 2 WEEKS ON 1 WEEK OFF
     Route: 048
     Dates: start: 20210701, end: 202109
  2. REVLIMID [Suspect]
     Active Substance: LENALIDOMIDE
     Dosage: 21 IN 28 DAYS
     Route: 048
     Dates: start: 202203
  3. DEXAMETHASONE [Suspect]
     Active Substance: DEXAMETHASONE
     Indication: Product used for unknown indication
     Route: 065
  4. ASPIRIN [Suspect]
     Active Substance: ASPIRIN
     Indication: Product used for unknown indication
     Dosage: LOW DOSE
     Route: 065
  5. ACYCLOVIR [Concomitant]
     Active Substance: ACYCLOVIR
  6. VITAMINS NOS [Concomitant]
     Active Substance: VITAMINS

REACTIONS (3)
  - Deep vein thrombosis [Recovered/Resolved]
  - Off label use [Unknown]
  - Thrombosis [Unknown]

NARRATIVE: CASE EVENT DATE: 20210701
